FAERS Safety Report 14298378 (Version 1)
Quarter: 2017Q4

REPORT INFORMATION
  Report Type: Spontaneous
  Country: AU (occurrence: AU)
  Receive Date: 20171218
  Receipt Date: 20171218
  Transmission Date: 20180321
  Serious: Yes (Other)
  Sender: FDA-Public Use
  Company Number: AU-TERSERA THERAPEUTICS, LLC-2037330

PATIENT
  Age: 33 Year
  Sex: Female
  Weight: 107 kg

DRUGS (4)
  1. TAMOXIFEN CITRATE. [Suspect]
     Active Substance: TAMOXIFEN CITRATE
     Route: 048
  2. ZOLADEX [Suspect]
     Active Substance: GOSERELIN ACETATE
     Indication: BREAST CANCER
     Route: 058
  3. TRIPTORELIN [Concomitant]
     Active Substance: TRIPTORELIN
  4. UNSPECIFIED HERBAL AND TRADITIONAL MEDICINE [Concomitant]
     Active Substance: HERBALS

REACTIONS (7)
  - Mood swings [Unknown]
  - Arthralgia [Recovered/Resolved]
  - Myalgia [Recovered/Resolved]
  - Malignant neoplasm progression [Unknown]
  - Drug intolerance [Unknown]
  - Hot flush [Unknown]
  - Rash [Unknown]

NARRATIVE: CASE EVENT DATE: 20170321
